FAERS Safety Report 4392774-3 (Version None)
Quarter: 2004Q3

REPORT INFORMATION
  Report Type: 
  Country: None (occurrence: None)
  Receive Date: 20040702
  Receipt Date: 20040623
  Transmission Date: 20050211
  Serious: Yes (Hospitalization)
  Sender: FDA-Public Use
  Company Number: 2004042734

PATIENT
  Age: 64 Year
  Sex: Female

DRUGS (5)
  1. LIPITOR [Suspect]
     Indication: DYSLIPIDAEMIA
     Dosage: 10 MG (10 MG, 1 IN 1 D) ORAL
     Route: 048
     Dates: start: 20020901
  2. BENAZEPRIL HCL [Concomitant]
  3. PROPATYLNITRATE [Concomitant]
  4. BUFFERIN [Concomitant]
  5. SOTALOL HYDROCHLORIDE [Concomitant]

REACTIONS (1)
  - VARICOSE VEIN OPERATION [None]
